FAERS Safety Report 6275281-2 (Version None)
Quarter: 2009Q3

REPORT INFORMATION
  Report Type: 
  Country: None (occurrence: None)
  Receive Date: 20090721
  Receipt Date: 20090713
  Transmission Date: 20100115
  Serious: Yes (Death)
  Sender: FDA-Public Use
  Company Number: A0790168A

PATIENT
  Age: 58 Year
  Sex: Female
  Weight: 80.9 kg

DRUGS (2)
  1. AVANDIA [Suspect]
     Indication: DRUG USE FOR UNKNOWN INDICATION
     Route: 048
     Dates: start: 20011201
  2. UNKNOWN [Concomitant]

REACTIONS (3)
  - CARDIOMEGALY [None]
  - MALAISE [None]
  - MYOCARDIAL INFARCTION [None]
